APPROVED DRUG PRODUCT: REGONOL
Active Ingredient: PYRIDOSTIGMINE BROMIDE
Strength: 5MG/ML
Dosage Form/Route: INJECTABLE;INJECTION
Application: N017398 | Product #001 | TE Code: AP
Applicant: SANDOZ INC
Approved: Approved Prior to Jan 1, 1982 | RLD: No | RS: No | Type: RX